FAERS Safety Report 8452400-0 (Version None)
Quarter: 2012Q2

REPORT INFORMATION
  Report Type: 
  Country: None (occurrence: None)
  Receive Date: 20120620
  Receipt Date: 20120427
  Transmission Date: 20120825
  Serious: No
  Sender: FDA-Public Use
  Company Number: US-VERTEX PHARMACEUTICALS INC.-AE-2012-005123

PATIENT
  Sex: Male
  Weight: 82.174 kg

DRUGS (4)
  1. RIBASPHERE [Concomitant]
     Indication: HEPATITIS C
     Route: 048
     Dates: start: 20120315
  2. INCIVEK [Suspect]
     Indication: HEPATITIS C
     Route: 048
     Dates: start: 20120315
  3. PEGASYS [Concomitant]
     Indication: HEPATITIS C
     Route: 058
     Dates: start: 20120315
  4. PEGASYS [Concomitant]
     Route: 058

REACTIONS (4)
  - RASH GENERALISED [None]
  - PLATELET COUNT DECREASED [None]
  - PRURITUS [None]
  - LIP SWELLING [None]
